FAERS Safety Report 8192967-3 (Version None)
Quarter: 2012Q1

REPORT INFORMATION
  Report Type: 
  Country: None (occurrence: None)
  Receive Date: 20120221
  Receipt Date: 20111108
  Transmission Date: 20120608
  Serious: No
  Sender: FDA-Public Use
  Company Number: 1000025320

PATIENT
  Age: 51 Year
  Sex: Female

DRUGS (7)
  1. DIOVAN [Concomitant]
  2. VITAMIN D (VITAMIN D) (VITAMIN D) [Concomitant]
  3. LIPITOR [Concomitant]
  4. XANAX [Concomitant]
  5. INSULIN (INSULIN) (INSULIN) [Concomitant]
  6. VIIBRYD [Suspect]
     Indication: DEPRESSION
     Dosage: 10 MG (10 MG, 1 IN 1 D), ORAL, 20 MG (20 MG, 1 IN 1 D) ORAL
     Route: 048
     Dates: start: 20111030, end: 20111105
  7. VIIBRYD [Suspect]
     Indication: DEPRESSION
     Dosage: 10 MG (10 MG, 1 IN 1 D), ORAL, 20 MG (20 MG, 1 IN 1 D) ORAL
     Route: 048
     Dates: start: 20111106

REACTIONS (1)
  - PARAESTHESIA [None]
